FAERS Safety Report 21095952 (Version 3)
Quarter: 2022Q4

REPORT INFORMATION
  Report Type: Report from Study
  Country: DE (occurrence: DE)
  Receive Date: 20220718
  Receipt Date: 20221130
  Transmission Date: 20230112
  Serious: Yes (Other)
  Sender: FDA-Public Use
  Company Number: DE-TAKEDA-2022TUS047217

PATIENT
  Age: 67 Year
  Sex: Female

DRUGS (3)
  1. HUMAN C1-ESTERASE INHIBITOR [Suspect]
     Active Substance: HUMAN C1-ESTERASE INHIBITOR
     Indication: Hereditary angioedema
     Dosage: 1000 INTERNATIONAL UNIT
     Route: 042
     Dates: start: 201502
  2. HUMAN C1-ESTERASE INHIBITOR [Suspect]
     Active Substance: HUMAN C1-ESTERASE INHIBITOR
     Indication: Hereditary angioedema
     Dosage: 1000 INTERNATIONAL UNIT
     Route: 042
     Dates: start: 201502
  3. HUMAN C1-ESTERASE INHIBITOR [Suspect]
     Active Substance: HUMAN C1-ESTERASE INHIBITOR
     Indication: Hereditary angioedema
     Dosage: 1000 INTERNATIONAL UNIT
     Route: 042
     Dates: start: 201502

REACTIONS (4)
  - Intestinal obstruction [Not Recovered/Not Resolved]
  - Abdominal pain [Not Recovered/Not Resolved]
  - Defaecation disorder [Not Recovered/Not Resolved]
  - Abdominal adhesions [Not Recovered/Not Resolved]

NARRATIVE: CASE EVENT DATE: 20220708
